FAERS Safety Report 25372573 (Version 1)
Quarter: 2025Q2

REPORT INFORMATION
  Report Type: Spontaneous
  Country: BE (occurrence: BE)
  Receive Date: 20250529
  Receipt Date: 20250529
  Transmission Date: 20250717
  Serious: Yes (Death, Hospitalization, Other)
  Sender: CELLTRION
  Company Number: BE-AMGEN-BELSP2024230270

PATIENT

DRUGS (5)
  1. BEVACIZUMAB [Suspect]
     Active Substance: BEVACIZUMAB
     Indication: Malignant neoplasm of unknown primary site
     Route: 065
     Dates: start: 202212
  2. OXALIPLATIN [Concomitant]
     Active Substance: OXALIPLATIN
     Indication: Malignant neoplasm of unknown primary site
     Route: 065
     Dates: start: 202212
  3. LEUCOVORIN [Concomitant]
     Active Substance: LEUCOVORIN\LEUCOVORIN CALCIUM
     Indication: Malignant neoplasm of unknown primary site
     Route: 065
     Dates: start: 202212
  4. FLUOROURACIL [Concomitant]
     Active Substance: FLUOROURACIL
     Indication: Malignant neoplasm of unknown primary site
     Route: 065
     Dates: start: 202212
  5. FLUOROURACIL [Concomitant]
     Active Substance: FLUOROURACIL
     Route: 065

REACTIONS (7)
  - Death [Fatal]
  - Acute respiratory distress syndrome [Unknown]
  - Pleural effusion [Unknown]
  - Carbohydrate antigen 19-9 increased [Unknown]
  - Lung infiltration [Unknown]
  - Pulmonary embolism [Unknown]
  - Off label use [Unknown]

NARRATIVE: CASE EVENT DATE: 20221201
